FAERS Safety Report 6652837-6 (Version None)
Quarter: 2010Q1

REPORT INFORMATION
  Report Type: 
  Country: None (occurrence: None)
  Receive Date: 20100325
  Receipt Date: 20100325
  Transmission Date: 20100710
  Serious: Yes (Hospitalization, Other)
  Sender: FDA-Public Use
  Company Number: None

PATIENT
  Age: 8 Year
  Sex: Male
  Weight: 21.7727 kg

DRUGS (1)
  1. SINGULAIR [Suspect]
     Indication: MULTIPLE ALLERGIES
     Dosage: 5MG 1 / DAY PO
     Route: 048
     Dates: start: 20090815, end: 20100315

REACTIONS (7)
  - ABNORMAL BEHAVIOUR [None]
  - EPILEPSY [None]
  - FEAR [None]
  - MOOD SWINGS [None]
  - PARALYSIS [None]
  - RESTLESSNESS [None]
  - SOMNOLENCE [None]
